FAERS Safety Report 5157475-2 (Version None)
Quarter: 2006Q4

REPORT INFORMATION
  Report Type: 
  Country: None (occurrence: None)
  Receive Date: 20061127
  Receipt Date: 20060905
  Transmission Date: 20070319
  Serious: Yes (Hospitalization)
  Sender: FDA-Public Use
  Company Number: US-GLAXOSMITHKLINE-A0619085A

PATIENT
  Age: 65 Year
  Sex: Male
  Weight: 63.6 kg

DRUGS (6)
  1. MALARONE [Suspect]
     Indication: MALARIA PROPHYLAXIS
     Dosage: 1TAB PER DAY
     Route: 048
     Dates: start: 20060807, end: 20060829
  2. LIPITOR [Concomitant]
  3. AMBIEN [Concomitant]
  4. SINGULAIR [Concomitant]
  5. CLARITIN [Concomitant]
  6. ASPIRIN [Concomitant]

REACTIONS (6)
  - ABDOMINAL PAIN [None]
  - ANOREXIA [None]
  - LIPASE INCREASED [None]
  - NAUSEA [None]
  - PANCREATITIS [None]
  - VOMITING [None]
